FAERS Safety Report 17209782 (Version 1)
Quarter: 2019Q4

REPORT INFORMATION
  Report Type: Spontaneous
  Country: US (occurrence: US)
  Receive Date: 20191227
  Receipt Date: 20191227
  Transmission Date: 20200122
  Serious: No
  Sender: FDA-Public Use
  Company Number: US-SA-2019SA344865

PATIENT
  Age: 15 Month
  Sex: Female

DRUGS (2)
  1. TUBERSOL [Suspect]
     Active Substance: TUBERCULIN PURIFIED PROTEIN DERIVATIVE
     Indication: TUBERCULIN TEST
     Dosage: 0.25 ML
     Route: 030
     Dates: start: 20191207
  2. HEPATITIS A [Concomitant]
     Indication: IMMUNISATION
     Route: 065

REACTIONS (3)
  - Product administered at inappropriate site [Unknown]
  - Incorrect route of product administration [Unknown]
  - Overdose [Unknown]
